FAERS Safety Report 4371140-0 (Version None)
Quarter: 2004Q2

REPORT INFORMATION
  Report Type: 
  Country: None (occurrence: None)
  Receive Date: 20040601
  Receipt Date: 20040520
  Transmission Date: 20050107
  Serious: Yes (Hospitalization)
  Sender: FDA-Public Use
  Company Number: US-JNJFOC-20040504751

PATIENT
  Age: 63 Year
  Sex: Female
  Weight: 79.3795 kg

DRUGS (8)
  1. INFLIXIMAB (INFLIXIMAB, RECOMBINANT) LYOPHILIZED POWDER [Suspect]
     Indication: RHEUMATOID ARTHRITIS
     Dosage: INTRAVENOUS
     Route: 042
     Dates: start: 20010313, end: 20030301
  2. PROZAC [Concomitant]
  3. TRAZODONE HCL [Concomitant]
  4. NEUTRONIN  (GABAPENTIN) [Concomitant]
  5. METHOTRXATE (METHOTREXATE) [Concomitant]
  6. FOSAMAX [Concomitant]
  7. CALCIUM (CALCIUM) [Concomitant]
  8. FOLIC ACID [Concomitant]

REACTIONS (3)
  - BACTERAEMIA [None]
  - CHRONIC OBSTRUCTIVE AIRWAYS DISEASE [None]
  - URINARY TRACT INFECTION [None]
